FAERS Safety Report 11894257 (Version 1)
Quarter: 2016Q1

REPORT INFORMATION
  Report Type: Spontaneous
  Country: ES (occurrence: ES)
  Receive Date: 20160107
  Receipt Date: 20160107
  Transmission Date: 20160526
  Serious: Yes (Hospitalization, Other)
  Sender: FDA-Public Use
  Company Number: ES-AXELLIA-000884

PATIENT
  Age: 32 Year
  Sex: Male

DRUGS (2)
  1. SULBACTAM/SULBACTAM SODIUM [Concomitant]
     Route: 042
  2. COLISTIN [Suspect]
     Active Substance: COLISTIN
     Indication: PRODUCT USED FOR UNKNOWN INDICATION
     Dosage: INITIATED COLISTIN 1 MIU/12H FOR 3 DAYS.?DOSE WAS INCREASED TO 4.5 MUI/24 H, LATER WITHDRAWN
     Route: 042

REACTIONS (5)
  - Toxicity to various agents [Recovered/Resolved]
  - Respiratory failure [Recovered/Resolved]
  - Neuromuscular blockade [Recovered/Resolved]
  - Paralysis [Recovered/Resolved]
  - Apnoea [None]
